FAERS Safety Report 13039522 (Version 1)
Quarter: 2016Q4

REPORT INFORMATION
  Report Type: Spontaneous
  Country: US (occurrence: US)
  Receive Date: 20161218
  Receipt Date: 20161218
  Transmission Date: 20170207
  Serious: Yes (Other)
  Sender: FDA-Public Use
  Company Number: None

PATIENT
  Age: 44 Year
  Sex: Male
  Weight: 76.5 kg

DRUGS (1)
  1. RANEXA [Suspect]
     Active Substance: RANOLAZINE
     Indication: CARDIAC DISORDER
     Dosage: ?          QUANTITY:1 TABLET(S);?
     Route: 048

REACTIONS (2)
  - Erectile dysfunction [None]
  - Sexual dysfunction [None]
